FAERS Safety Report 19966825 (Version 1)
Quarter: 2021Q4

REPORT INFORMATION
  Report Type: Spontaneous
  Country: US (occurrence: US)
  Receive Date: 20211019
  Receipt Date: 20211019
  Transmission Date: 20220303
  Serious: No
  Sender: FDA-Public Use
  Company Number: US-BRISTOL-MYERS SQUIBB COMPANY-BMS-2021-107052

PATIENT
  Age: 80 Year
  Sex: Male

DRUGS (1)
  1. ELIQUIS [Suspect]
     Active Substance: APIXABAN
     Indication: Heart valve replacement
     Dosage: 2.5 MILLIGRAM, BID
     Route: 048
     Dates: start: 202007

REACTIONS (2)
  - Abdominal discomfort [Unknown]
  - Intentional product use issue [Unknown]
